FAERS Safety Report 13072014 (Version 1)
Quarter: 2016Q4

REPORT INFORMATION
  Report Type: Spontaneous
  Country: US (occurrence: US)
  Receive Date: 20161228
  Receipt Date: 20161228
  Transmission Date: 20170207
  Serious: Yes (Other)
  Sender: FDA-Public Use
  Company Number: None

PATIENT
  Age: 13 Year
  Sex: Male
  Weight: 34.2 kg

DRUGS (2)
  1. FLUVOXAMINE [Suspect]
     Active Substance: FLUVOXAMINE
     Indication: OBSESSIVE THOUGHTS
     Route: 048
     Dates: start: 20161220, end: 20161227
  2. LOXETANE [Concomitant]

REACTIONS (4)
  - Aggression [None]
  - Emotional disorder [None]
  - Abnormal behaviour [None]
  - Product substitution issue [None]

NARRATIVE: CASE EVENT DATE: 20161227
